FAERS Safety Report 21383888 (Version 1)
Quarter: 2022Q3

REPORT INFORMATION
  Report Type: Spontaneous
  Country: DE (occurrence: DE)
  Receive Date: 20220928
  Receipt Date: 20220928
  Transmission Date: 20221027
  Serious: Yes (Hospitalization, Other)
  Sender: FDA-Public Use
  Company Number: DE-ADRED-05472-01

PATIENT
  Age: 83 Year
  Sex: Female
  Weight: 70 kg

DRUGS (10)
  1. CANDESARTAN [Interacting]
     Active Substance: CANDESARTAN
     Indication: Product used for unknown indication
     Dosage: 16 MG, 1-0-1.5-0, TABLETS, MEDICATION ERRORS
  2. AMLODIPINE [Interacting]
     Active Substance: AMLODIPINE BESYLATE
     Indication: Product used for unknown indication
     Dosage: 1 DOSAGE FORMS DAILY; 5 MG, 0-0-1-0, TABLETS, UNIT DOSE: 1 DF, FREQUENCY : OD, MEDICATION ERRORS
  3. BISOPROLOL [Interacting]
     Active Substance: BISOPROLOL
     Indication: Product used for unknown indication
     Dosage: 1 DOSAGE FORMS DAILY; 5 MG, 0.5-0-0.5-0, TABLETS, UNIT DOSE :0.5 DF, MEDICATION ERRORS
  4. TORSEMIDE [Interacting]
     Active Substance: TORSEMIDE
     Indication: Product used for unknown indication
     Dosage: 1 DOSAGE FORMS DAILY; 5 MG, 1-0-0-0, TABLETS, UNIT DOSE: 1 DF, FREQUENCY : OD, MEDICATION ERRORS
  5. MIRTAZAPINE [Interacting]
     Active Substance: MIRTAZAPINE
     Indication: Product used for unknown indication
     Dosage: 1 DOSAGE FORMS DAILY; 30 MG, 0-0-0-1, TABLETS, UNIT DOSE: 1 DF , FREQUENCY : OD, MEDICATION ERRORS
  6. PREGABALIN [Interacting]
     Active Substance: PREGABALIN
     Indication: Product used for unknown indication
     Dosage: 2 DOSAGE FORMS DAILY; 50 MG, 1-0-0-1, CAPSULES, UNIT DOSE: 1 DF , FREQUENCY : BD, MEDICATION ERRORS
  7. BRIVUDINE [Interacting]
     Active Substance: BRIVUDINE
     Indication: Product used for unknown indication
     Dosage: 1 DOSAGE FORMS DAILY; 125 MG, 0-1-0-0, TABLETS, UNIT DOSE: 1 DF, FREQUENCY : OD, MEDICATION ERRORS
  8. EDOXABAN [Concomitant]
     Active Substance: EDOXABAN
     Indication: Product used for unknown indication
     Dosage: 1 DOSAGE FORMS DAILY; 60MG, 1-0-0-0, TABLETS, UNIT DOSE: 1 DF , FREQUENCY : OD
  9. METAMIZOL [Concomitant]
     Active Substance: METAMIZOLE SODIUM
     Indication: Product used for unknown indication
     Dosage: 4 DOSAGE FORMS DAILY; 500MG, 1-1-1-1, TABLETS, UNIT DOSE: 1 DF, FREQUENCY : 4 TIMES A DAY
  10. ATORVASTATIN [Concomitant]
     Active Substance: ATORVASTATIN
     Indication: Product used for unknown indication
     Dosage: 1 DOSAGE FORMS DAILY; 40 MG, 0-0-1-0, TABLETS, UNIT DOSE: 1 DF, FREQUENCY : OD

REACTIONS (18)
  - Product prescribing error [Unknown]
  - Oedema peripheral [Unknown]
  - Product prescribing error [Unknown]
  - Hypokalaemia [Unknown]
  - Labelled drug-drug interaction medication error [Unknown]
  - Tremor [Unknown]
  - Product monitoring error [Unknown]
  - Labelled drug-drug interaction medication error [Unknown]
  - Hyponatraemia [Unknown]
  - Acute kidney injury [Unknown]
  - Hypertension [Unknown]
  - Therapeutic drug monitoring analysis not performed [Unknown]
  - Product prescribing error [Unknown]
  - Herpes zoster [Unknown]
  - Product monitoring error [Unknown]
  - Tachycardia [Unknown]
  - Dyspnoea [Unknown]
  - Systemic infection [Unknown]

NARRATIVE: CASE EVENT DATE: 20200206
